FAERS Safety Report 8551771-4 (Version None)
Quarter: 2012Q3

REPORT INFORMATION
  Report Type: 
  Country: None (occurrence: None)
  Receive Date: 20120730
  Receipt Date: 20120504
  Transmission Date: 20120928
  Serious: Yes (Other)
  Sender: FDA-Public Use
  Company Number: US-ROXANE LABORATORIES, INC.-2012-EU-02527GD

PATIENT
  Age: 9 Year
  Sex: Male

DRUGS (4)
  1. SERTRALINE HYDROCHLORIDE [Suspect]
     Indication: MENTAL DISORDER
  2. FERROUS SULFATE TAB [Concomitant]
     Indication: RESTLESS LEGS SYNDROME
  3. SERTRALINE HYDROCHLORIDE [Suspect]
     Indication: GENERALISED ANXIETY DISORDER
     Dosage: 25 MG
  4. CYPROHEPTADINE HCL [Concomitant]
     Indication: MIGRAINE

REACTIONS (1)
  - ERYTHEMA MULTIFORME [None]
